FAERS Safety Report 7982348-7 (Version None)
Quarter: 2011Q4

REPORT INFORMATION
  Report Type: 
  Country: None (occurrence: None)
  Receive Date: 20111214
  Receipt Date: 20111214
  Transmission Date: 20120403
  Serious: No
  Sender: FDA-Public Use
  Company Number: None

PATIENT
  Sex: Female
  Weight: 122.0176 kg

DRUGS (1)
  1. ZOLPIDEM [Suspect]

REACTIONS (4)
  - FATIGUE [None]
  - MEDICATION ERROR [None]
  - BLOOD PRESSURE INCREASED [None]
  - DRUG DISPENSING ERROR [None]
